FAERS Safety Report 6083886-7 (Version None)
Quarter: 2009Q1

REPORT INFORMATION
  Report Type: 
  Country: None (occurrence: None)
  Receive Date: 20090217
  Receipt Date: 20090217
  Transmission Date: 20090719
  Serious: No
  Sender: FDA-Public Use
  Company Number: None

PATIENT
  Sex: Male

DRUGS (1)
  1. BUPROPION SR 150MG 1 BID ORALLY [Suspect]
     Indication: MAJOR DEPRESSION
     Dates: start: 20061001, end: 20061101

REACTIONS (2)
  - RASH [None]
  - URTICARIA [None]
